FAERS Safety Report 20905567 (Version 1)
Quarter: 2022Q2

REPORT INFORMATION
  Report Type: Spontaneous
  Country: US (occurrence: None)
  Receive Date: 20220601
  Receipt Date: 20220601
  Transmission Date: 20220721
  Serious: Yes (Other)
  Sender: FDA-Public Use
  Company Number: None

PATIENT
  Age: 71 Year
  Sex: Male

DRUGS (9)
  1. AMBRISENTAN [Suspect]
     Active Substance: AMBRISENTAN
     Indication: Pulmonary arterial hypertension
     Dosage: FREQUENCY : DAILY;?
     Route: 048
     Dates: start: 20220204
  2. TADALAFIL [Concomitant]
  3. LASIX [Concomitant]
  4. CLONAZEPAM [Concomitant]
  5. METOPROLOL [Concomitant]
     Active Substance: METOPROLOL
  6. PRADAXA [Concomitant]
  7. FLOMAX [Concomitant]
  8. PEPCID [Concomitant]
  9. LORATADINE [Concomitant]

REACTIONS (3)
  - Syncope [None]
  - Dyspnoea exertional [None]
  - Pleural effusion [None]

NARRATIVE: CASE EVENT DATE: 20220510
